FAERS Safety Report 20127327 (Version 1)
Quarter: 2021Q4

REPORT INFORMATION
  Report Type: Spontaneous
  Country: US (occurrence: US)
  Receive Date: 20211129
  Receipt Date: 20211129
  Transmission Date: 20220303
  Serious: Yes (Hospitalization)
  Sender: FDA-Public Use
  Company Number: US-ELI_LILLY_AND_COMPANY-US202111006806

PATIENT
  Sex: Male

DRUGS (2)
  1. HUMULIN R U-500 [Suspect]
     Active Substance: INSULIN HUMAN
     Indication: Type 2 diabetes mellitus
     Dosage: UNK UNK, PRN(SLIDING SCALE)
     Route: 058
     Dates: start: 2011
  2. COUMADIN [Suspect]
     Active Substance: WARFARIN SODIUM
     Indication: Anticoagulant therapy
     Dosage: UNK UNK, UNKNOWN
     Route: 065

REACTIONS (6)
  - Brain stem stroke [Recovering/Resolving]
  - Visual impairment [Recovered/Resolved]
  - Antiphospholipid syndrome [Unknown]
  - Extraocular muscle disorder [Recovered/Resolved]
  - Balance disorder [Recovering/Resolving]
  - Asthenia [Recovering/Resolving]

NARRATIVE: CASE EVENT DATE: 20150101
